FAERS Safety Report 5468926-8 (Version None)
Quarter: 2007Q3

REPORT INFORMATION
  Report Type: 
  Country: None (occurrence: None)
  Receive Date: 20070926
  Receipt Date: 20070924
  Transmission Date: 20080115
  Serious: Yes (Hospitalization)
  Sender: FDA-Public Use
  Company Number: FR-MERCK-0709FRA00066

PATIENT
  Age: 46 Year
  Sex: Female

DRUGS (3)
  1. NOROXIN [Suspect]
     Route: 048
     Dates: start: 20070709, end: 20070714
  2. PHLOROGLUCINOL AND TRIMETHYLPHLOROGLUCINOL [Suspect]
     Route: 048
     Dates: start: 20070709, end: 20070714
  3. ACETAMINOPHEN [Suspect]
     Route: 048
     Dates: start: 20070709, end: 20070714

REACTIONS (6)
  - ECCHYMOSIS [None]
  - EPISTAXIS [None]
  - GINGIVAL BLEEDING [None]
  - IDIOPATHIC THROMBOCYTOPENIC PURPURA [None]
  - PURPURA [None]
  - THROMBOCYTOPENIA [None]
